FAERS Safety Report 25936971 (Version 1)
Quarter: 2025Q4

REPORT INFORMATION
  Report Type: Spontaneous
  Country: AR (occurrence: AR)
  Receive Date: 20251017
  Receipt Date: 20251017
  Transmission Date: 20260117
  Serious: Yes (Death, Other)
  Sender: SERVIER
  Company Number: AR-SERVIER-S25013501

PATIENT

DRUGS (2)
  1. TIBSOVO [Suspect]
     Active Substance: IVOSIDENIB
     Indication: Acute myeloid leukaemia
     Dosage: UNK
     Route: 048
     Dates: start: 20250815, end: 20250830
  2. TIBSOVO [Suspect]
     Active Substance: IVOSIDENIB
     Dosage: HALF DOSE
     Route: 048
     Dates: start: 20250901, end: 20250902

REACTIONS (2)
  - Death [Fatal]
  - Differentiation syndrome [Unknown]

NARRATIVE: CASE EVENT DATE: 20250828
